FAERS Safety Report 8353316-0 (Version None)
Quarter: 2012Q2

REPORT INFORMATION
  Report Type: 
  Country: None (occurrence: None)
  Receive Date: 20120511
  Receipt Date: 20120508
  Transmission Date: 20120825
  Serious: Yes (Other)
  Sender: FDA-Public Use
  Company Number: PHHY2012CA039556

PATIENT
  Weight: 108.4 kg

DRUGS (2)
  1. ZOLEDRONOC ACID [Suspect]
     Dosage: UNK UKN, UNK
     Route: 042
     Dates: start: 20100326
  2. VITAMIN D [Concomitant]
     Dosage: 450 UKN, TID

REACTIONS (1)
  - HUMERUS FRACTURE [None]
